FAERS Safety Report 11962093 (Version 6)
Quarter: 2016Q1

REPORT INFORMATION
  Report Type: Spontaneous
  Country: IN (occurrence: IN)
  Receive Date: 20160126
  Receipt Date: 20160217
  Transmission Date: 20160526
  Serious: Yes (Other)
  Sender: FDA-Public Use
  Company Number: IN-ACTAVIS-2016-01211

PATIENT
  Age: 11 Year
  Sex: Female

DRUGS (12)
  1. MORPHINE SULFATE (UNKNOWN) [Suspect]
     Active Substance: MORPHINE SULFATE
     Indication: ANALGESIC THERAPY
     Dosage: 180 MG, DAILY
     Route: 048
  2. RISPERIDONE. [Concomitant]
     Active Substance: RISPERIDONE
     Indication: HALLUCINATION
     Dosage: AT BEDTIME
     Route: 065
  3. FENTANYL. [Suspect]
     Active Substance: FENTANYL
     Dosage: 50 ?G, Q1H
     Route: 062
  4. MORPHINE SULFATE (UNKNOWN) [Suspect]
     Active Substance: MORPHINE SULFATE
     Dosage: 60 MG, DAILY
     Route: 048
  5. RISPERIDONE. [Concomitant]
     Active Substance: RISPERIDONE
     Indication: INSOMNIA
     Dosage: AT BEDTIME
     Route: 065
  6. FENTANYL. [Suspect]
     Active Substance: FENTANYL
     Indication: ANALGESIC THERAPY
     Dosage: 75 ?G, Q1H
     Route: 062
  7. FENTANYL. [Suspect]
     Active Substance: FENTANYL
     Dosage: UNKNOWN
     Route: 062
  8. RISPERIDONE. [Concomitant]
     Active Substance: RISPERIDONE
     Indication: AGITATION
     Dosage: AT BEDTIME
     Route: 065
  9. DICLOFENAC [Concomitant]
     Active Substance: DICLOFENAC
     Indication: ANALGESIC THERAPY
     Dosage: 75 MG, DAILY
     Route: 048
  10. DICYCLOVERINE [Concomitant]
     Indication: ABDOMINAL PAIN
     Dosage: UNKNOWN
     Route: 048
  11. HYOSCINE BUTYLBROMIDE [Concomitant]
     Active Substance: BUTYLSCOPOLAMINE
     Indication: ABDOMINAL PAIN
     Dosage: UNKNOWN
     Route: 051
  12. FLUPIRTINE [Concomitant]
     Active Substance: FLUPIRTINE
     Indication: ANALGESIC THERAPY
     Dosage: UNKNOWN
     Route: 048

REACTIONS (9)
  - Myoclonus [Recovering/Resolving]
  - Allodynia [Recovering/Resolving]
  - Hallucination, visual [Recovering/Resolving]
  - Anxiety [Recovering/Resolving]
  - Insomnia [Recovering/Resolving]
  - Pain [Recovering/Resolving]
  - Neurotoxicity [Recovering/Resolving]
  - Agitation [Recovering/Resolving]
  - Drug intolerance [Unknown]
